FAERS Safety Report 4697744-3 (Version None)
Quarter: 2005Q2

REPORT INFORMATION
  Report Type: 
  Country: None (occurrence: None)
  Receive Date: 20050119
  Receipt Date: 20050119
  Transmission Date: 20051028
  Serious: No
  Sender: FDA-Public Use
  Company Number: None

PATIENT

DRUGS (1)
  1. CLONAZEPAM [Suspect]

REACTIONS (3)
  - ANXIETY [None]
  - CONDITION AGGRAVATED [None]
  - CONVULSION [None]
